FAERS Safety Report 11438260 (Version 1)
Quarter: 2015Q3

REPORT INFORMATION
  Report Type: Spontaneous
  Country: US (occurrence: US)
  Receive Date: 20150901
  Receipt Date: 20150901
  Transmission Date: 20151125
  Serious: No
  Sender: FDA-Public Use
  Company Number: US-ASTRAZENECA-2015SE80349

PATIENT

DRUGS (23)
  1. LIPITOR [Suspect]
     Active Substance: ATORVASTATIN CALCIUM
     Route: 065
  2. MS CONTIN [Concomitant]
     Active Substance: MORPHINE SULFATE
     Indication: PAIN
  3. CELEXA [Concomitant]
     Active Substance: CITALOPRAM HYDROBROMIDE
  4. OSCAL [Concomitant]
     Active Substance: CALCIUM CARBONATE
  5. INSULIN GLARGINE [Concomitant]
     Active Substance: INSULIN GLARGINE
  6. TOPROL XL [Concomitant]
     Active Substance: METOPROLOL SUCCINATE
  7. FEMARA [Concomitant]
     Active Substance: LETROZOLE
     Indication: BREAST CANCER
  8. VITAMIN D3 [Concomitant]
     Active Substance: CHOLECALCIFEROL
  9. MIRALAX [Concomitant]
     Active Substance: POLYETHYLENE GLYCOL 3350
     Indication: BOWEL MOVEMENT IRREGULARITY
  10. SYNTHROID [Concomitant]
     Active Substance: LEVOTHYROXINE SODIUM
  11. MEGACE [Suspect]
     Active Substance: MEGESTROL ACETATE
     Indication: APPETITE DISORDER
  12. PREVACID [Concomitant]
     Active Substance: LANSOPRAZOLE
  13. IBRANCE [Suspect]
     Active Substance: PALBOCICLIB
     Route: 048
  14. BAYER ASPIRIN [Concomitant]
     Active Substance: ASPIRIN
  15. CRESTOR [Suspect]
     Active Substance: ROSUVASTATIN CALCIUM
     Route: 048
  16. XGEVA [Concomitant]
     Active Substance: DENOSUMAB
  17. PROCRIT [Concomitant]
     Active Substance: ERYTHROPOIETIN
  18. VITAMIN B12 [Concomitant]
     Active Substance: CYANOCOBALAMIN
  19. REMERON [Concomitant]
     Active Substance: MIRTAZAPINE
  20. ATIVAN [Suspect]
     Active Substance: LORAZEPAM
     Indication: ANXIETY
  21. NITROSTAT [Suspect]
     Active Substance: NITROGLYCERIN
     Route: 065
  22. NORCO [Concomitant]
     Active Substance: ACETAMINOPHEN\HYDROCODONE BITARTRATE
     Indication: PAIN
  23. MAG OXIDE [Concomitant]
     Active Substance: MAGNESIUM OXIDE

REACTIONS (5)
  - Muscle spasms [Unknown]
  - Drug hypersensitivity [Unknown]
  - Rash [Unknown]
  - Abasia [Unknown]
  - Skin disorder [Unknown]
